FAERS Safety Report 6498349-4 (Version None)
Quarter: 2009Q4

REPORT INFORMATION
  Report Type: 
  Country: None (occurrence: None)
  Receive Date: 20091215
  Receipt Date: 20091207
  Transmission Date: 20100525
  Serious: Yes (Congenital Anomaly)
  Sender: FDA-Public Use
  Company Number: GB-TEVA-217444ISR

PATIENT

DRUGS (1)
  1. VENLAFAXINE [Suspect]
     Indication: DEPRESSION
     Route: 064
     Dates: start: 20080101

REACTIONS (2)
  - ENCEPHALOCELE [None]
  - MATERNAL DRUGS AFFECTING FOETUS [None]
